FAERS Safety Report 25144805 (Version 1)
Quarter: 2025Q2

REPORT INFORMATION
  Report Type: Spontaneous
  Country: US (occurrence: None)
  Receive Date: 20250331
  Receipt Date: 20250331
  Transmission Date: 20250717
  Serious: Yes (Other)
  Sender: FDA-CTU
  Company Number: None

PATIENT
  Age: 48 Year
  Sex: Female

DRUGS (1)
  1. ADALIMUMAB [Suspect]
     Active Substance: ADALIMUMAB
     Indication: Rheumatoid arthritis
     Dosage: 40MG SQ EVERY 2 WEEKS?
     Dates: start: 20250131

REACTIONS (4)
  - Drug ineffective [None]
  - Joint effusion [None]
  - Peripheral swelling [None]
  - Fatigue [None]
